FAERS Safety Report 8776296 (Version 2)
Quarter: 2012Q4

REPORT INFORMATION
  Report Type: 
  Country: FR (occurrence: FR)
  Receive Date: 20120910
  Receipt Date: 20121018
  Transmission Date: 20130627
  Serious: Yes (Life-Threatening)
  Sender: FDA-Public Use
  Company Number: FR-B.I. PHARMACEUTICALS,INC./RIDGEFIELD-2012-FF-01183FF

PATIENT
  Age: 83 Year
  Sex: Male
  Weight: 57 kg

DRUGS (4)
  1. PRADAXA [Suspect]
     Indication: ATRIAL FIBRILLATION
     Dosage: 150 mg
     Route: 048
     Dates: end: 20120822
  2. KARDEGIC [Suspect]
     Dosage: 160 mg
     Route: 048
     Dates: end: 20120822
  3. TRIATEC [Concomitant]
     Route: 048
  4. LASILIX [Concomitant]
     Route: 048

REACTIONS (2)
  - Rectal haemorrhage [Not Recovered/Not Resolved]
  - Hypovolaemic shock [Not Recovered/Not Resolved]
